FAERS Safety Report 9506657 (Version 1)
Quarter: 2013Q3

REPORT INFORMATION
  Report Type: Spontaneous
  Country: DE (occurrence: None)
  Receive Date: 20130904
  Receipt Date: 20130904
  Transmission Date: 20140515
  Serious: Yes (Other)
  Sender: FDA-Public Use
  Company Number: FK201303899

PATIENT
  Age: 64 Year
  Sex: Male

DRUGS (6)
  1. FLUOROURACIL [Suspect]
     Indication: COLORECTAL CANCER
  2. FLUOROURACIL [Suspect]
     Indication: METASTASES TO LIVER
  3. ONCOFOLIC (FOLATE SODIUM) [Suspect]
     Indication: COLORECTAL CANCER
  4. ONCOFOLIC (FOLATE SODIUM) [Suspect]
     Indication: METASTASES TO LIVER
  5. MITOMYCIN [Suspect]
     Indication: COLORECTAL CANCER
  6. MITOMYCIN [Suspect]
     Indication: METASTASES TO LIVER

REACTIONS (9)
  - Aspartate aminotransferase abnormal [None]
  - Alanine aminotransferase abnormal [None]
  - Blood alkaline phosphatase abnormal [None]
  - Leukopenia [None]
  - Thrombocytopenia [None]
  - Haematotoxicity [None]
  - Haemoglobin abnormal [None]
  - Granulocytopenia [None]
  - Hepatotoxicity [None]
